FAERS Safety Report 7536526-1 (Version None)
Quarter: 2011Q2

REPORT INFORMATION
  Report Type: 
  Country: None (occurrence: None)
  Receive Date: 20110524
  Receipt Date: 20110413
  Transmission Date: 20111010
  Serious: Yes (Other)
  Sender: FDA-Public Use
  Company Number: 026154

PATIENT
  Sex: Female
  Weight: 63 kg

DRUGS (3)
  1. CIMZIA [Suspect]
     Indication: CROHN'S DISEASE
     Dosage: (SUBCUTANEOUS)
     Route: 058
     Dates: start: 20100805
  2. PREDNISONE [Concomitant]
  3. METRONIDAZOLE [Concomitant]

REACTIONS (2)
  - COLONIC OBSTRUCTION [None]
  - DRUG INEFFECTIVE [None]
